FAERS Safety Report 23336528 (Version 3)
Quarter: 2024Q1

REPORT INFORMATION
  Report Type: Spontaneous
  Country: JP (occurrence: JP)
  Receive Date: 20231226
  Receipt Date: 20240307
  Transmission Date: 20240410
  Serious: Yes (Death)
  Sender: FDA-Public Use
  Company Number: JP-JNJFOC-20231261553

PATIENT
  Age: 7 Month

DRUGS (3)
  1. EPOPROSTENOL [Suspect]
     Active Substance: EPOPROSTENOL
     Indication: Pulmonary hypertension
     Dosage: DOSE UNKNOWN
     Route: 041
  2. SILDENAFIL CITRATE [Concomitant]
     Active Substance: SILDENAFIL CITRATE
     Route: 048
  3. OXYGEN [Concomitant]
     Active Substance: OXYGEN
     Route: 055

REACTIONS (5)
  - Pulmonary hypertension [Fatal]
  - Pulmonary capillary haemangiomatosis [Fatal]
  - Blood pressure decreased [Fatal]
  - Off label use [Unknown]
  - Off label use [Unknown]
